FAERS Safety Report 17215215 (Version 1)
Quarter: 2019Q4

REPORT INFORMATION
  Report Type: Spontaneous
  Country: US (occurrence: US)
  Receive Date: 20191230
  Receipt Date: 20191230
  Transmission Date: 20200122
  Serious: Yes (Other)
  Sender: FDA-Public Use
  Company Number: US-BECTON DICKINSON-2019BDN00445

PATIENT
  Sex: Male

DRUGS (8)
  1. VANC [Suspect]
     Active Substance: VANCOMYCIN
     Route: 042
  2. UNSPECIFIED FLUIDS [Suspect]
     Active Substance: UNSPECIFIED INGREDIENT
     Route: 042
  3. CHLORAPREP WITH TINT [Suspect]
     Active Substance: CHLORHEXIDINE GLUCONATE\ISOPROPYL ALCOHOL
     Indication: INFECTION PROPHYLAXIS
     Dosage: UNK
     Route: 061
     Dates: start: 20191031, end: 20191031
  4. CHLORAPREP [Suspect]
     Active Substance: CHLORHEXIDINE GLUCONATE\ISOPROPYL ALCOHOL
     Indication: INFECTION PROPHYLAXIS
     Dosage: UNK
     Route: 061
     Dates: start: 20191031, end: 20191031
  5. DOT PPICC SOLO 5F D1 [Suspect]
     Active Substance: DEVICE
  6. LIDOCAINE AMPOULE [Suspect]
     Active Substance: LIDOCAINE
     Dosage: 5 ML
     Dates: start: 20191031
  7. HEPARIN [Suspect]
     Active Substance: HEPARIN SODIUM
  8. TEGADERM CHG DRESSING [Suspect]
     Active Substance: CHLORHEXIDINE GLUCONATE\DEVICE
     Dosage: 4^ X 4-3/4^
     Dates: start: 20191031

REACTIONS (2)
  - Foreign body [Recovered/Resolved]
  - Device breakage [Recovered/Resolved]

NARRATIVE: CASE EVENT DATE: 2019
